FAERS Safety Report 8220319-6 (Version None)
Quarter: 2012Q1

REPORT INFORMATION
  Report Type: 
  Country: None (occurrence: None)
  Receive Date: 20120314
  Receipt Date: 20120305
  Transmission Date: 20120608
  Serious: Yes (Hospitalization, Disabling)
  Sender: FDA-Public Use
  Company Number: 2011SP051267

PATIENT
  Age: 26 Year
  Sex: Female
  Weight: 99.7913 kg

DRUGS (1)
  1. NUVARING [Suspect]
     Indication: CONTRACEPTION
     Dosage: ;QM;
     Dates: start: 20070101, end: 20091102

REACTIONS (4)
  - DEEP VEIN THROMBOSIS [None]
  - VARICOSE VEIN [None]
  - IMPAIRED WORK ABILITY [None]
  - OVARIAN CYST [None]
